FAERS Safety Report 5435988-3 (Version None)
Quarter: 2007Q3

REPORT INFORMATION
  Report Type: 
  Country: None (occurrence: None)
  Receive Date: 20070831
  Receipt Date: 20070824
  Transmission Date: 20080115
  Serious: Yes (Hospitalization)
  Sender: FDA-Public Use
  Company Number: A0676160A

PATIENT
  Age: 70 Year
  Sex: Female

DRUGS (9)
  1. REQUIP [Suspect]
     Indication: RESTLESS LEGS SYNDROME
     Dosage: 1MG PER DAY
     Route: 048
     Dates: start: 20050101
  2. ALLOPURINOL [Concomitant]
  3. TOPROL-XL [Concomitant]
  4. UNSPECIFIED MEDICATION [Concomitant]
  5. PROTONIX [Concomitant]
  6. LEVOTHROID [Concomitant]
  7. COUMADIN [Concomitant]
  8. SEROQUEL [Concomitant]
  9. TRAZODONE HCL [Concomitant]

REACTIONS (5)
  - CARDIAC PACEMAKER INSERTION [None]
  - CEREBROVASCULAR ACCIDENT [None]
  - ELECTROLYTE IMBALANCE [None]
  - RENAL FAILURE ACUTE [None]
  - THROMBOSIS [None]
